FAERS Safety Report 10798557 (Version 1)
Quarter: 2015Q1

REPORT INFORMATION
  Report Type: Spontaneous
  Country: US (occurrence: US)
  Receive Date: 20150216
  Receipt Date: 20150216
  Transmission Date: 20150721
  Serious: Yes (Hospitalization, Other)
  Sender: FDA-Public Use
  Company Number: US-GLAXOSMITHKLINE-US2015019592

PATIENT
  Sex: Male

DRUGS (2)
  1. ADVAIR DISKUS [Suspect]
     Active Substance: FLUTICASONE PROPIONATE\SALMETEROL XINAFOATE
     Dosage: 250/50
     Route: 055
     Dates: start: 2012
  2. SPIRIVA [Concomitant]
     Active Substance: TIOTROPIUM BROMIDE MONOHYDRATE

REACTIONS (11)
  - Rehabilitation therapy [Unknown]
  - Fall [Recovered/Resolved]
  - Back injury [Recovering/Resolving]
  - Enterovirus infection [Recovered/Resolved]
  - Arthritis [Not Recovered/Not Resolved]
  - Cardiac failure congestive [Recovered/Resolved]
  - Pneumonia [Recovered/Resolved]
  - Atrial fibrillation [Recovered/Resolved]
  - Kidney infection [Recovered/Resolved]
  - Bone marrow disorder [Not Recovered/Not Resolved]
  - Urinary tract infection [Recovered/Resolved]
